FAERS Safety Report 20892871 (Version 1)
Quarter: 2022Q2

REPORT INFORMATION
  Report Type: Spontaneous
  Country: CA (occurrence: None)
  Receive Date: 20220531
  Receipt Date: 20220531
  Transmission Date: 20220720
  Serious: Yes (Hospitalization)
  Sender: FDA-Public Use
  Company Number: CA-ROCHE-3100741

PATIENT
  Age: 78 Year
  Sex: Male

DRUGS (2)
  1. PIRFENIDONE [Suspect]
     Active Substance: PIRFENIDONE
     Indication: Idiopathic pulmonary fibrosis
     Route: 048
  2. PIRFENIDONE [Suspect]
     Active Substance: PIRFENIDONE
     Dosage: DRUG DOSE FIRST ADMINISTERED IS 6.0 DOSAGE FORMS
     Route: 048

REACTIONS (2)
  - Aortic aneurysm [Unknown]
  - Hypophagia [Unknown]
